FAERS Safety Report 6397384-4 (Version None)
Quarter: 2009Q4

REPORT INFORMATION
  Report Type: 
  Country: None (occurrence: None)
  Receive Date: 20091012
  Receipt Date: 20090929
  Transmission Date: 20100525
  Serious: Yes (Other)
  Sender: FDA-Public Use
  Company Number: PHEH2009US12409

PATIENT
  Sex: Female

DRUGS (10)
  1. RECLAST [Suspect]
     Dosage: UNK
  2. PREMPRO [Concomitant]
  3. LEXAPRO [Concomitant]
  4. ATENOLOL [Concomitant]
  5. SYNTHROID [Concomitant]
  6. LISINOPRIL [Concomitant]
  7. PROTONIX [Concomitant]
  8. HYDROCHLOROTHIAZIDE [Concomitant]
  9. VITAMINS [Concomitant]
  10. CALCIUM [Concomitant]

REACTIONS (3)
  - FALL [None]
  - ORTHOSIS USER [None]
  - SPINAL FRACTURE [None]
